FAERS Safety Report 4489259-2 (Version None)
Quarter: 2004Q4

REPORT INFORMATION
  Report Type: 
  Country: None (occurrence: None)
  Receive Date: 20041026
  Receipt Date: 20041013
  Transmission Date: 20050328
  Serious: Yes (Death)
  Sender: FDA-Public Use
  Company Number: 2004IC000886

PATIENT
  Age: 60 Year
  Sex: Male

DRUGS (2)
  1. FLUOROURACIL [Suspect]
     Indication: HEPATIC NEOPLASM MALIGNANT
     Dosage: 450 MG; INTRA-ARTERIAL
     Route: 013
     Dates: start: 20000713, end: 20000701
  2. OIF (INTERFERON ALFA) [Suspect]
     Indication: HEPATIC NEOPLASM MALIGNANT
     Dosage: 500 MIU; SUBCUTANEOUS
     Route: 058
     Dates: start: 20000713, end: 20000701

REACTIONS (5)
  - ANOREXIA [None]
  - DEPRESSED LEVEL OF CONSCIOUSNESS [None]
  - INTERSTITIAL LUNG DISEASE [None]
  - PNEUMONIA STAPHYLOCOCCAL [None]
  - RESPIRATORY FAILURE [None]
